FAERS Safety Report 5772853-6 (Version None)
Quarter: 2008Q2

REPORT INFORMATION
  Report Type: 
  Country: None (occurrence: None)
  Receive Date: 20080613
  Receipt Date: 20080603
  Transmission Date: 20081010
  Serious: Yes (Other)
  Sender: FDA-Public Use
  Company Number: CA-PFIZER INC-2008039631

PATIENT
  Sex: Female
  Weight: 65.8 kg

DRUGS (5)
  1. LYRICA [Suspect]
     Indication: FIBROMYALGIA
     Route: 048
     Dates: start: 20080414, end: 20080418
  2. LYRICA [Suspect]
     Indication: PAIN
  3. ANTIDEPRESSANTS [Concomitant]
  4. PREMARIN [Concomitant]
  5. CELEXA [Concomitant]

REACTIONS (13)
  - ABNORMAL BEHAVIOUR [None]
  - CONFUSIONAL STATE [None]
  - DIPLOPIA [None]
  - DISORIENTATION [None]
  - EATING DISORDER [None]
  - FALL [None]
  - GAIT DISTURBANCE [None]
  - HALLUCINATION [None]
  - HYPERSOMNIA [None]
  - IMPAIRED WORK ABILITY [None]
  - JUDGEMENT IMPAIRED [None]
  - MEMORY IMPAIRMENT [None]
  - ROAD TRAFFIC ACCIDENT [None]
